FAERS Safety Report 6478172-7 (Version None)
Quarter: 2009Q4

REPORT INFORMATION
  Report Type: 
  Country: None (occurrence: None)
  Receive Date: 20091202
  Receipt Date: 20091121
  Transmission Date: 20100525
  Serious: Yes (Other)
  Sender: FDA-Public Use
  Company Number: AUR-APL-2009-01368

PATIENT
  Age: 45 Year
  Sex: Male

DRUGS (4)
  1. TERBINAFINE HCL [Suspect]
     Indication: FUNGAL SKIN INFECTION
     Dosage: 250MG DAILY ORAL
     Route: 048
     Dates: start: 20060413, end: 20060525
  2. BETNOVATE CREAM [Concomitant]
  3. DAKTACORT CREAM [Concomitant]
  4. MOVELAT [Concomitant]

REACTIONS (2)
  - DISTURBANCE IN ATTENTION [None]
  - ROAD TRAFFIC ACCIDENT [None]
